FAERS Safety Report 17045708 (Version 1)
Quarter: 2019Q4

REPORT INFORMATION
  Report Type: Spontaneous
  Country: GB (occurrence: GB)
  Receive Date: 20191118
  Receipt Date: 20191118
  Transmission Date: 20200122
  Serious: Yes (Other)
  Sender: FDA-Public Use
  Company Number: GB-BAXTER-2019BAX023388

PATIENT
  Age: 60 Year
  Sex: Female

DRUGS (1)
  1. DOXIL [Suspect]
     Active Substance: DOXORUBICIN HYDROCHLORIDE
     Indication: OVARIAN CANCER
     Dosage: ID NUMBER :009119 (PRODUCED IN PHARMACY)
     Route: 042

REACTIONS (1)
  - Anaphylactic reaction [Recovered/Resolved]
